FAERS Safety Report 9824006 (Version 3)
Quarter: 2015Q3

REPORT INFORMATION
  Report Type: Spontaneous
  Country: US (occurrence: US)
  Receive Date: 20140116
  Receipt Date: 20150807
  Transmission Date: 20151125
  Serious: No
  Sender: FDA-Public Use
  Company Number: US-GILEAD-2011-0038396

PATIENT
  Age: 72 Year
  Sex: Female

DRUGS (20)
  1. FLECAINIDE [Concomitant]
     Active Substance: FLECAINIDE
  2. BROVANA [Concomitant]
     Active Substance: ARFORMOTEROL TARTRATE
  3. MULTIVITAMIN [Concomitant]
     Active Substance: VITAMINS
  4. KLOR-KON [Concomitant]
  5. SULFAMETHOXAZOLE/TRIMETHOPRIM [Concomitant]
  6. CRESTOR [Concomitant]
     Active Substance: ROSUVASTATIN CALCIUM
  7. WARFARIN [Concomitant]
     Active Substance: WARFARIN
  8. BACTROBAN [Concomitant]
     Active Substance: MUPIROCIN\MUPIROCIN CALCIUM
  9. LETAIRIS [Suspect]
     Active Substance: AMBRISENTAN
     Indication: PULMONARY HYPERTENSION
     Route: 048
     Dates: start: 20081117
  10. SPIRIVA [Concomitant]
     Active Substance: TIOTROPIUM BROMIDE MONOHYDRATE
  11. FLONASE [Concomitant]
     Active Substance: FLUTICASONE PROPIONATE
  12. PREDNISONE. [Concomitant]
     Active Substance: PREDNISONE
  13. REVATIO [Concomitant]
     Active Substance: SILDENAFIL CITRATE
  14. LASIX [Concomitant]
     Active Substance: FUROSEMIDE
  15. ZYFLO CR [Concomitant]
     Active Substance: ZILEUTON
  16. LODRANE D [Concomitant]
     Active Substance: BROMPHENIRAMINE MALEATE\PSEUDOEPHEDRINE HYDROCHLORIDE
  17. LETAIRIS [Suspect]
     Active Substance: AMBRISENTAN
     Indication: HYPOXIA
  18. LETAIRIS [Suspect]
     Active Substance: AMBRISENTAN
     Indication: PORTAL HYPERTENSION
  19. LETAIRIS [Suspect]
     Active Substance: AMBRISENTAN
     Indication: FIBROSIS
  20. CALCIUM [Concomitant]
     Active Substance: CALCIUM

REACTIONS (2)
  - Blood pressure decreased [Recovered/Resolved]
  - Dizziness [Recovered/Resolved]
